FAERS Safety Report 10793804 (Version 3)
Quarter: 2015Q1

REPORT INFORMATION
  Report Type: Spontaneous
  Country: US (occurrence: US)
  Receive Date: 20150213
  Receipt Date: 20150320
  Transmission Date: 20150721
  Serious: No
  Sender: FDA-Public Use
  Company Number: US-PFIZER INC-2015047585

PATIENT
  Age: 53 Year
  Sex: Male

DRUGS (10)
  1. CALCIUM CARBONATE. [Concomitant]
     Active Substance: CALCIUM CARBONATE
     Dosage: 600MG (1500MG), 2, Q DAY
     Route: 048
     Dates: start: 20131014
  2. DENOSUMAB [Concomitant]
     Active Substance: DENOSUMAB
     Dosage: 120MG,EVERY 4 WEEKS
     Dates: start: 20131120
  3. ZYRTEC [Concomitant]
     Active Substance: CETIRIZINE HYDROCHLORIDE
     Dosage: 10 MG, 1,Q.DAY
     Route: 048
     Dates: start: 20140114
  4. BENADRYL [Concomitant]
     Active Substance: DIPHENHYDRAMINE HYDROCHLORIDE
     Dosage: UNK UNK,  1,TWICE A DAY(BID)
     Route: 048
     Dates: start: 20140314
  5. FLUOCINONIDE. [Concomitant]
     Active Substance: FLUOCINONIDE
     Dosage: 0.05 %, APPLY TO AFFECTED AREA AT NIGHT
     Route: 061
     Dates: start: 20140314
  6. LISINOPRIL. [Concomitant]
     Active Substance: LISINOPRIL
     Dosage: 20 MG, 1, Q.DAY
     Route: 048
     Dates: start: 20140811
  7. NEUPOGEN [Suspect]
     Active Substance: FILGRASTIM
     Dosage: UNK, WEEKLY
     Dates: start: 20131025, end: 20140131
  8. NORVASC [Concomitant]
     Active Substance: AMLODIPINE BESYLATE
     Dosage: 5 MG, 1, Q.DAY
     Route: 048
     Dates: start: 20150113
  9. TORISEL [Suspect]
     Active Substance: TEMSIROLIMUS
     Dosage: 25 MG, WEEKLY
     Dates: start: 20131023, end: 20140131
  10. DOXEPIN [Concomitant]
     Active Substance: DOXEPIN
     Indication: PRURITUS
     Dosage: 10 MG, 1-2 P.O Q DAY PRN
     Route: 048
     Dates: start: 20140314

REACTIONS (1)
  - Drug intolerance [Unknown]
